FAERS Safety Report 11284176 (Version 3)
Quarter: 2015Q3

REPORT INFORMATION
  Report Type: Spontaneous
  Country: US (occurrence: US)
  Receive Date: 20150720
  Receipt Date: 20150918
  Transmission Date: 20151125
  Serious: No
  Sender: FDA-Public Use
  Company Number: PHEH2015US013442

PATIENT
  Age: 70 Year
  Sex: Female
  Weight: 68.3 kg

DRUGS (2)
  1. VIVELLE DOT [Suspect]
     Active Substance: ESTRADIOL
     Indication: HORMONE REPLACEMENT THERAPY
     Dosage: 0.1 MG, BIW
     Route: 062
     Dates: start: 20150513, end: 20150524
  2. VIVELLE DOT [Suspect]
     Active Substance: ESTRADIOL
     Dosage: 0.1 MG, BIW
     Route: 062
     Dates: start: 20150513, end: 20150524

REACTIONS (1)
  - Drug ineffective [Unknown]
